FAERS Safety Report 12725634 (Version 1)
Quarter: 2016Q3

REPORT INFORMATION
  Report Type: Spontaneous
  Country: US (occurrence: US)
  Receive Date: 20160908
  Receipt Date: 20160908
  Transmission Date: 20161109
  Serious: Yes (Other)
  Sender: FDA-Public Use
  Company Number: US-BAYER-2016-169837

PATIENT
  Age: 27 Year
  Sex: Female

DRUGS (1)
  1. BETASERON [Suspect]
     Active Substance: INTERFERON BETA-1B
     Dosage: UNK

REACTIONS (10)
  - Dizziness [None]
  - Optic neuritis [None]
  - Loss of bladder sensation [None]
  - Visual impairment [None]
  - Clumsiness [None]
  - Arthropathy [None]
  - Hypoaesthesia [None]
  - Diplopia [None]
  - Balance disorder [None]
  - Hypoaesthesia [None]

NARRATIVE: CASE EVENT DATE: 199603
